FAERS Safety Report 5082343-4 (Version None)
Quarter: 2006Q3

REPORT INFORMATION
  Report Type: 
  Country: None (occurrence: None)
  Receive Date: 20060814
  Receipt Date: 20060726
  Transmission Date: 20061208
  Serious: Yes (Other)
  Sender: FDA-Public Use
  Company Number: CHPA2006US07274

PATIENT
  Age: 48 Year
  Sex: Female
  Weight: 81.6 kg

DRUGS (1)
  1. NICOTINE [Suspect]
     Indication: SMOKING CESSATION THERAPY
     Dosage: 21 MG, QD, TRANSDERMAL
     Route: 062
     Dates: start: 20060725, end: 20060726

REACTIONS (5)
  - ABNORMAL DREAMS [None]
  - BLOOD PRESSURE INCREASED [None]
  - DIZZINESS [None]
  - SOMNOLENCE [None]
  - TREATMENT NONCOMPLIANCE [None]
